FAERS Safety Report 9634177 (Version 1)
Quarter: 2013Q4

REPORT INFORMATION
  Report Type: Spontaneous
  Country: DE (occurrence: None)
  Receive Date: 20131017
  Receipt Date: 20131017
  Transmission Date: 20140711
  Serious: Yes (Hospitalization)
  Sender: FDA-Public Use
  Company Number: 1310-1294

PATIENT
  Age: 71 Year
  Sex: Female
  Weight: 50 kg

DRUGS (13)
  1. EYLEA [Suspect]
     Indication: AGE-RELATED MACULAR DEGENERATION
     Route: 031
     Dates: start: 20130510, end: 20130510
  2. XYLOCAINE (LIDOCAINE) [Concomitant]
  3. NOLVADEX (TAMOXIFEN) [Concomitant]
  4. CALFINA (ALFACALCIDOL) [Concomitant]
  5. ACTONEL (RISEDRONATE SODIUM) [Concomitant]
  6. VIGAMOV (MOXIFLOXACIN HYDROCHLORIDE) [Concomitant]
  7. OLMETEC (OLMESARTAN MEDOXOMIL) [Concomitant]
  8. ATELEC (CILNIDIPINE) (TABLET) [Concomitant]
  9. TAKEPRON(LANSOPRAZOLE) (CAPSULE) [Concomitant]
  10. LIVALO(PITAVASTATIN CALCIUM) (TABLET) [Concomitant]
  11. REFLEX (MIRTAZAPINE) [Concomitant]
  12. ADETPHOS (ADENOSINE TRIPHOSPHATE, DISODIUM SALT) (GRANULES) [Concomitant]
  13. CARNACULIN (KALLIDINOGENASE) [Concomitant]

REACTIONS (2)
  - Thrombotic cerebral infarction [None]
  - VIIth nerve paralysis [None]
